FAERS Safety Report 6615142-X (Version None)
Quarter: 2010Q1

REPORT INFORMATION
  Report Type: 
  Country: None (occurrence: None)
  Receive Date: 20100226
  Receipt Date: 20100212
  Transmission Date: 20100710
  Serious: Yes (Death)
  Sender: FDA-Public Use
  Company Number: 2010000542

PATIENT
  Age: 68 Year
  Sex: Male

DRUGS (2)
  1. TARCEVA [Suspect]
     Indication: DRUG USE FOR UNKNOWN INDICATION
     Dosage: ORAL
     Route: 048
     Dates: start: 20090701, end: 20100106
  2. INNOHEP [Suspect]
     Indication: DEEP VEIN THROMBOSIS
     Dosage: (1 DOSAGE FORMS), SUBCUTANEOUS
     Route: 058
     Dates: start: 20090701, end: 20100106

REACTIONS (7)
  - ANTI-PLATELET ANTIBODY POSITIVE [None]
  - CEREBRAL ISCHAEMIA [None]
  - DEEP VEIN THROMBOSIS [None]
  - DISSEMINATED INTRAVASCULAR COAGULATION [None]
  - PERIPHERAL ISCHAEMIA [None]
  - THROMBOCYTOPENIA [None]
  - THROMBOSIS IN DEVICE [None]
